FAERS Safety Report 9936944 (Version 1)
Quarter: 2014Q1

REPORT INFORMATION
  Report Type: Spontaneous
  Country: US (occurrence: None)
  Receive Date: 20140115
  Receipt Date: 20140115
  Transmission Date: 20141002
  Serious: No
  Sender: FDA-Public Use
  Company Number: 2013US002729

PATIENT
  Age: 77 Year
  Sex: Male
  Weight: 75.3 kg

DRUGS (1)
  1. ICLUSIG (PONATINIB) TABLET, 15MG [Suspect]
     Indication: PRODUCT USED FOR UNKNOWN INDICATION
     Route: 048
     Dates: start: 20130927, end: 2013

REACTIONS (5)
  - Chest pain [None]
  - Oropharyngeal pain [None]
  - Influenza like illness [None]
  - Dyspnoea [None]
  - Abdominal pain upper [None]
